FAERS Safety Report 10753602 (Version 1)
Quarter: 2015Q1

REPORT INFORMATION
  Report Type: Spontaneous
  Country: US (occurrence: None)
  Receive Date: 20150129
  Receipt Date: 20150129
  Transmission Date: 20150721
  Serious: No
  Sender: FDA-Public Use
  Company Number: 15AE001

PATIENT
  Sex: Female

DRUGS (2)
  1. EQUATE SLEEP AID [Suspect]
     Active Substance: DOXYLAMINE SUCCINATE
     Indication: SLEEP DISORDER
     Route: 048
     Dates: start: 20150120
  2. MAGNESIUM [Concomitant]
     Active Substance: MAGNESIUM

REACTIONS (2)
  - Somnolence [None]
  - Sleep disorder [None]

NARRATIVE: CASE EVENT DATE: 20150120
